FAERS Safety Report 6638842-4 (Version None)
Quarter: 2010Q1

REPORT INFORMATION
  Report Type: 
  Country: None (occurrence: None)
  Receive Date: 20100317
  Receipt Date: 20100312
  Transmission Date: 20100710
  Serious: Yes (Death, Life-Threatening, Hospitalization)
  Sender: FDA-Public Use
  Company Number: RU-ELI_LILLY_AND_COMPANY-RU200904007054

PATIENT
  Sex: Female
  Weight: 96.7 kg

DRUGS (6)
  1. GEMCITABINE HCL [Suspect]
     Indication: BREAST CANCER METASTATIC
     Dosage: 1000 MG/M2, DAY 1 AND 8 EVERY 3 WEEKS
     Route: 042
     Dates: start: 20090417
  2. GEMCITABINE HCL [Suspect]
     Dosage: UNKNOWN, CHANGED
     Dates: start: 20090401
  3. VINFLUNINE [Suspect]
     Indication: BREAST CANCER METASTATIC
     Dosage: 320 MG/M2, DAY 1 EVERY 3 WEEKS
     Route: 042
     Dates: start: 20090417
  4. VINFLUNINE [Suspect]
     Dosage: UNKNOWN, CHANGED
     Dates: start: 20090401
  5. NEUPOGEN [Concomitant]
     Dates: start: 20090419, end: 20090420
  6. DEXAMETHASONE [Concomitant]
     Dosage: UNK, UNK
     Dates: start: 20090417, end: 20090421

REACTIONS (5)
  - ASTHENIA [None]
  - LEUKOPENIA [None]
  - NEUTROPENIA [None]
  - STOMATITIS [None]
  - THROMBOCYTOPENIA [None]
